FAERS Safety Report 6767033-1 (Version None)
Quarter: 2010Q2

REPORT INFORMATION
  Report Type: 
  Country: None (occurrence: None)
  Receive Date: 20100611
  Receipt Date: 20100609
  Transmission Date: 20101027
  Serious: Yes (Hospitalization, Other)
  Sender: FDA-Public Use
  Company Number: GB-MERCK-1006GBR00044

PATIENT
  Age: 78 Year
  Sex: Male
  Weight: 75 kg

DRUGS (9)
  1. FOSAMAX [Suspect]
     Indication: OSTEOPOROSIS PROPHYLAXIS
     Route: 048
  2. ALBUTEROL [Concomitant]
     Route: 065
  3. CALCIUM CARBONATE AND CHOLECALCIFEROL [Concomitant]
     Route: 065
  4. CYCLOPHOSPHAMIDE [Concomitant]
     Route: 065
  5. FLUTICASONE PROPIONATE AND SALMETEROL XINAFOATE [Concomitant]
     Route: 065
  6. LANSOPRAZOLE [Concomitant]
     Route: 065
  7. PREDNISOLONE [Concomitant]
     Route: 065
  8. TIOTROPIUM BROMIDE [Concomitant]
     Route: 065
  9. URSODIOL [Concomitant]
     Route: 065

REACTIONS (3)
  - ATRIAL FIBRILLATION [None]
  - CHEST PAIN [None]
  - LOWER RESPIRATORY TRACT INFECTION [None]
